FAERS Safety Report 13092685 (Version 2)
Quarter: 2017Q1

REPORT INFORMATION
  Report Type: Spontaneous
  Country: US (occurrence: US)
  Receive Date: 20170106
  Receipt Date: 20170110
  Transmission Date: 20170428
  Serious: Yes (Other)
  Sender: FDA-Public Use
  Company Number: US-JNJFOC-20161213289

PATIENT
  Sex: Female

DRUGS (3)
  1. TYLENOL 8 HR ARTHRITIS PAIN [Suspect]
     Active Substance: ACETAMINOPHEN
     Route: 048
  2. TYLENOL 8 HR ARTHRITIS PAIN [Suspect]
     Active Substance: ACETAMINOPHEN
     Indication: PYREXIA
     Dosage: 1/2 CAPLET (325MG), ONCE
     Route: 048
     Dates: start: 20161203
  3. TYLENOL REGULAR STRENGTH [Suspect]
     Active Substance: ACETAMINOPHEN
     Indication: PYREXIA
     Dosage: EVERY 6 HOURS ONCE
     Route: 048
     Dates: start: 201611

REACTIONS (2)
  - Drug administration error [Unknown]
  - Oxygen supplementation [Unknown]

NARRATIVE: CASE EVENT DATE: 20161203
